FAERS Safety Report 20574518 (Version 1)
Quarter: 2022Q1

REPORT INFORMATION
  Report Type: Other
  Country: CN (occurrence: None)
  Receive Date: 20220309
  Receipt Date: 20220309
  Transmission Date: 20220423
  Serious: Yes (Other)
  Sender: FDA-Public Use
  Company Number: CN-ROCHE-3039130

PATIENT

DRUGS (2)
  1. PEGINTERFERON ALFA-2A [Suspect]
     Active Substance: PEGINTERFERON ALFA-2A
     Indication: Chronic hepatitis C
     Dosage: AFTER 1 MONTH OF CONTINUOUS TREATMENT, DOSE WAS ADJUSTED 3 TIMES PER WEEK, AND THEN CONTINUED FOR 5
     Route: 065
  2. RIBAVIRIN [Suspect]
     Active Substance: RIBAVIRIN
     Indication: Chronic hepatitis C
     Dosage: 800-1000UG FOR HALF A YEAR
     Route: 048

REACTIONS (1)
  - Myelosuppression [Unknown]
